FAERS Safety Report 14754901 (Version 3)
Quarter: 2018Q3

REPORT INFORMATION
  Report Type: Spontaneous
  Country: CZ (occurrence: CZ)
  Receive Date: 20180413
  Receipt Date: 20180726
  Transmission Date: 20181010
  Serious: Yes (Other)
  Sender: FDA-Public Use
  Company Number: CZ-ROCHE-2106108

PATIENT
  Sex: Male

DRUGS (2)
  1. OBINUTUZUMAB. [Suspect]
     Active Substance: OBINUTUZUMAB
     Indication: B-CELL LYMPHOMA
     Dosage: DAY 1, 8, 15 CYCLE 1 AND DAY 1 IN ALL FOLLOWING CYCLES
     Route: 042
     Dates: start: 201712
  2. BENDAMUSTINE [Suspect]
     Active Substance: BENDAMUSTINE
     Indication: B-CELL LYMPHOMA
     Dosage: DAY 1?2 IN EVERY CYCLE
     Route: 042
     Dates: start: 201712

REACTIONS (2)
  - Sinus tachycardia [Recovered/Resolved]
  - Arrhythmia [Recovered/Resolved]
